FAERS Safety Report 8618990-X (Version None)
Quarter: 2012Q3

REPORT INFORMATION
  Report Type: 
  Country: None (occurrence: None)
  Receive Date: 20120824
  Receipt Date: 20120814
  Transmission Date: 20120928
  Serious: Yes (Hospitalization, Other)
  Sender: FDA-Public Use
  Company Number: PHHY2008GB14004

PATIENT
  Sex: Female

DRUGS (29)
  1. TRAZODONE HYDROCHLORIDE [Concomitant]
     Dosage: 400 MG, UNK
  2. CLOZARIL [Suspect]
     Indication: SCHIZOPHRENIA
     Dosage: 100 MG,(25 MANE AND 75 MG NOCTE)
     Dates: start: 20050101
  3. LITHIUM CARBONATE [Concomitant]
     Dosage: 800 MG, QD
  4. VALPROATE SODIUM [Concomitant]
     Dosage: UNK UKN, UNK
  5. VALPROATE SODIUM [Concomitant]
     Dosage: 1.2 G, BID
  6. PROCYCLIDINE HYDROCHLORIDE 2MG TAB [Concomitant]
     Dosage: 2.5 MG, BID
  7. PROPRANOLOL [Concomitant]
     Dosage: 40 MG, BID
  8. CLOZARIL [Suspect]
     Dosage: 250 MG, (100 MG MANE AND 150 MG NOCTE)
     Dates: end: 20080601
  9. TRAZODONE HYDROCHLORIDE [Concomitant]
     Dosage: 200 MG, UNK
  10. VALPROATE SODIUM [Concomitant]
     Dosage: 700 MG, BID
  11. DIAZEPAM [Concomitant]
     Dosage: UNK UKN, UNK
  12. VALPROATE SODIUM [Concomitant]
     Dosage: 1 MG,(NOCTE)
  13. ARIPIPRAZOLE [Concomitant]
     Dosage: UNK UKN, UNK
  14. SERTRALINE HYDROCHLORIDE [Concomitant]
     Dosage: 50 MG, UNK
  15. ARIPIPRAZOLE [Concomitant]
     Dosage: 15 MG,
  16. LITHIUM CARBONATE [Concomitant]
     Dosage: 1000 MG,(NOCTE)
  17. HALOPERIDOL [Concomitant]
     Dosage: UNK UKN, UNK
  18. CLOZARIL [Suspect]
     Dosage: 125 MG, (25 MG MANE AND 100 MG NOCTE)
  19. FLUOXETINE HCL [Concomitant]
     Dosage: 20 MG, QD
  20. SULPIRIDE [Concomitant]
     Dosage: UNK UKN, UNK
  21. SULPIRIDE [Concomitant]
     Dosage: 800 MG, BID
  22. DIAZEPAM [Concomitant]
     Dosage: 5 MG, BID (PRN)
  23. ARIPIPRAZOLE [Concomitant]
     Dosage: 30 MG, BID
  24. ARIPIPRAZOLE [Concomitant]
     Dosage: 10 MG, QD (NOCTE))
  25. TRAZODONE HYDROCHLORIDE [Concomitant]
     Dosage: 300 MG, UNK
  26. VALPROATE SODIUM [Concomitant]
     Dosage: 500 MG,(MANE)
  27. VALPROATE SODIUM [Concomitant]
     Dosage: UNK UKN, UNK
  28. FESOTERODINE FUMARATE [Concomitant]
     Dosage: 8 MG, QD
  29. SULPIRIDE [Concomitant]
     Dosage: 1.2 G, UNK

REACTIONS (21)
  - BODY TEMPERATURE INCREASED [None]
  - MORBID THOUGHTS [None]
  - HYPERHIDROSIS [None]
  - SCHIZOPHRENIA [None]
  - PSYCHOTIC DISORDER [None]
  - TEARFULNESS [None]
  - NEUTROPENIA [None]
  - ABDOMINAL DISCOMFORT [None]
  - WHITE BLOOD CELL COUNT DECREASED [None]
  - SUSPICIOUSNESS [None]
  - DELUSION [None]
  - NERVOUSNESS [None]
  - SUICIDAL IDEATION [None]
  - NEUTROPHIL COUNT DECREASED [None]
  - PLATELET COUNT DECREASED [None]
  - DEPRESSED MOOD [None]
  - THOUGHT BLOCKING [None]
  - THIRST [None]
  - HALLUCINATION, AUDITORY [None]
  - POVERTY OF SPEECH [None]
  - ANXIETY [None]
